FAERS Safety Report 19882557 (Version 2)
Quarter: 2023Q2

REPORT INFORMATION
  Report Type: Report from Study
  Country: ZA (occurrence: ZA)
  Receive Date: 20210925
  Receipt Date: 20230405
  Transmission Date: 20230722
  Serious: Yes (Other)
  Sender: FDA-Public Use
  Company Number: ZA-NOVARTISPH-NVSC2021ZA214520

PATIENT
  Age: 47 Year
  Sex: Female

DRUGS (1)
  1. COSENTYX [Suspect]
     Active Substance: SECUKINUMAB
     Indication: Psoriatic arthropathy
     Dosage: 150 MG, QMO
     Route: 058
     Dates: start: 20210707, end: 202208

REACTIONS (6)
  - Intestinal cyst [Unknown]
  - Pain [Unknown]
  - Helicobacter infection [Unknown]
  - Pharyngitis [Unknown]
  - Throat irritation [Unknown]
  - Oropharyngeal pain [Unknown]
